FAERS Safety Report 4826180-1 (Version None)
Quarter: 2005Q4

REPORT INFORMATION
  Report Type: 
  Country: None (occurrence: None)
  Receive Date: 20051014
  Receipt Date: 20050718
  Transmission Date: 20060501
  Serious: No
  Sender: FDA-Public Use
  Company Number: 2005SP001930

PATIENT
  Age: 68 Year
  Sex: Male
  Weight: 90.7194 kg

DRUGS (4)
  1. LUNESTA [Suspect]
     Indication: INSOMNIA
     Dosage: 3MG;HS; ORAL
     Route: 048
     Dates: start: 20050601, end: 20050701
  2. AMBIEN [Concomitant]
  3. DESYREL [Concomitant]
  4. CONTINUOUS POSITIVE AIRWAY PRESSURE (CPAP) [Concomitant]

REACTIONS (4)
  - ABDOMINAL PAIN [None]
  - ASTHENIA [None]
  - CHEST PAIN [None]
  - PAIN IN EXTREMITY [None]
